FAERS Safety Report 12366740 (Version 1)
Quarter: 2016Q2

REPORT INFORMATION
  Report Type: Spontaneous
  Country: US (occurrence: US)
  Receive Date: 20160513
  Receipt Date: 20160513
  Transmission Date: 20160815
  Serious: No
  Sender: FDA-Public Use
  Company Number: US-TEIKOKU PHARMA USA-TPU2016-00279

PATIENT
  Sex: Female
  Weight: 68.1 kg

DRUGS (2)
  1. LIDOCAINE PATCH [Suspect]
     Active Substance: LIDOCAINE
     Indication: SCIATIC NERVE NEUROPATHY
     Dosage: APPLY PATCH TO LOWER BACK AND/OR LEG AS NEEDED, SOMETIMES CUTS THE PATCH
     Route: 061
     Dates: start: 2008
  2. LIDOCAINE PATCH [Suspect]
     Active Substance: LIDOCAINE
     Indication: SCIATICA

REACTIONS (1)
  - Multiple use of single-use product [Unknown]
